FAERS Safety Report 13710869 (Version 1)
Quarter: 2017Q3

REPORT INFORMATION
  Report Type: Spontaneous
  Country: US (occurrence: US)
  Receive Date: 20170703
  Receipt Date: 20170703
  Transmission Date: 20171127
  Serious: Yes (Other)
  Sender: FDA-Public Use
  Company Number: US-ASTRAZENECA-2017SE67096

PATIENT
  Sex: Female

DRUGS (2)
  1. MOVANTIK [Suspect]
     Active Substance: NALOXEGOL OXALATE
     Indication: CONSTIPATION
     Dosage: 25.0MG UNKNOWN
     Route: 048
  2. METHADONE [Concomitant]
     Active Substance: METHADONE HYDROCHLORIDE

REACTIONS (9)
  - Dizziness [Unknown]
  - Abdominal pain [Unknown]
  - Diarrhoea [Unknown]
  - Hyperhidrosis [Unknown]
  - Loss of consciousness [Unknown]
  - Anxiety [Unknown]
  - Insomnia [Unknown]
  - Piloerection [Unknown]
  - Chills [Unknown]
